FAERS Safety Report 4274241-0 (Version None)
Quarter: 2004Q1

REPORT INFORMATION
  Report Type: 
  Country: None (occurrence: None)
  Receive Date: 20040115
  Receipt Date: 20040106
  Transmission Date: 20041129
  Serious: Yes (Death)
  Sender: FDA-Public Use
  Company Number: 163-20785-03100495

PATIENT
  Age: 73 Year
  Sex: Male

DRUGS (2)
  1. THALOMID [Suspect]
     Indication: AMYLOIDOSIS
     Dosage: 50-200MG, DAILY, ORAL
     Route: 048
     Dates: start: 20030929, end: 20030101
  2. THALOMID [Suspect]
     Indication: MULTIPLE MYELOMA
     Dosage: 50-200MG, DAILY, ORAL
     Route: 048
     Dates: start: 20030929, end: 20030101

REACTIONS (1)
  - ARRHYTHMIA [None]
